FAERS Safety Report 7571888-0 (Version None)
Quarter: 2011Q2

REPORT INFORMATION
  Report Type: 
  Country: None (occurrence: None)
  Receive Date: 20110624
  Receipt Date: 20100629
  Transmission Date: 20111010
  Serious: No
  Sender: FDA-Public Use
  Company Number: A0869409A

PATIENT
  Age: 73 Year
  Sex: Male

DRUGS (2)
  1. VERAMYST [Suspect]
     Indication: EPISTAXIS
     Dosage: 2SPR TWICE PER DAY
     Route: 045
     Dates: start: 20100301
  2. MULTIPLE MEDICATIONS [Concomitant]

REACTIONS (1)
  - THERAPEUTIC RESPONSE UNEXPECTED [None]
